FAERS Safety Report 6156135-9 (Version None)
Quarter: 2009Q2

REPORT INFORMATION
  Report Type: 
  Country: None (occurrence: None)
  Receive Date: 20090415
  Receipt Date: 20090408
  Transmission Date: 20091009
  Serious: Yes (Hospitalization, Other)
  Sender: FDA-Public Use
  Company Number: US-ELI_LILLY_AND_COMPANY-US200904001986

PATIENT
  Sex: Male
  Weight: 65.76 kg

DRUGS (15)
  1. BYETTA [Suspect]
     Indication: TYPE 2 DIABETES MELLITUS
     Dosage: 5 UG, 2/D
     Route: 058
     Dates: start: 20050101
  2. BYETTA [Suspect]
     Dosage: 10 UG, 2/D
     Route: 058
  3. ACTOS [Concomitant]
     Indication: TYPE 2 DIABETES MELLITUS
  4. JANUVIA [Concomitant]
     Indication: TYPE 2 DIABETES MELLITUS
     Dosage: 100 MG, DAILY (1/D)
     Route: 048
  5. METFORMIN HCL [Concomitant]
     Indication: TYPE 2 DIABETES MELLITUS
     Dosage: 1000 MG, UNK
     Route: 048
  6. PRANDIN [Concomitant]
     Indication: TYPE 2 DIABETES MELLITUS
     Dosage: 0.5 MG, AS NEEDED
     Route: 048
  7. PREVACID [Concomitant]
     Indication: GASTROINTESTINAL DISORDER
  8. LIPITOR [Concomitant]
     Indication: BLOOD CHOLESTEROL INCREASED
  9. COUMADIN [Concomitant]
  10. DILTIAZEM [Concomitant]
     Indication: ATRIAL FIBRILLATION
     Dosage: 30 MG, 2/D
     Route: 048
  11. KLOR-CON [Concomitant]
     Indication: ELECTROLYTE SUBSTITUTION THERAPY
     Dosage: 50 MEQ, DAILY (1/D)
     Route: 048
  12. MULTI-VITAMIN [Concomitant]
  13. ADVAIR HFA [Concomitant]
     Indication: ASTHMA
  14. FISH OIL [Concomitant]
     Dosage: UNK, DAILY (1/D)
  15. IRON [Concomitant]
     Dosage: 325 MG, DAILY (1/D)
     Route: 048

REACTIONS (18)
  - ABDOMINAL PAIN [None]
  - ATRIAL FIBRILLATION [None]
  - BLOOD POTASSIUM DECREASED [None]
  - BLOOD PRESSURE DECREASED [None]
  - BLOOD PRESSURE SYSTOLIC DECREASED [None]
  - BLOOD PRODUCT TRANSFUSION [None]
  - CATARACT [None]
  - DRUG ERUPTION [None]
  - HAEMOGLOBIN DECREASED [None]
  - LOSS OF CONSCIOUSNESS [None]
  - NEPHROLITHIASIS [None]
  - POSTERIOR CAPSULE OPACIFICATION [None]
  - SLEEP APNOEA SYNDROME [None]
  - SMALL INTESTINAL HAEMORRHAGE [None]
  - SOMNOLENCE [None]
  - URINE CALCIUM INCREASED [None]
  - VOMITING [None]
  - WEIGHT DECREASED [None]
